FAERS Safety Report 4532769-X (Version None)
Quarter: 2004Q4

REPORT INFORMATION
  Report Type: 
  Country: None (occurrence: None)
  Receive Date: 20041220
  Receipt Date: 20041220
  Transmission Date: 20050328
  Serious: Yes (Other)
  Sender: FDA-Public Use
  Company Number: None

PATIENT
  Age: 21 Year
  Sex: Male

DRUGS (1)
  1. ULTRAVIST 300 [Suspect]
     Indication: COMPUTERISED TOMOGRAM
     Dosage: 100 CC IV
     Route: 042

REACTIONS (7)
  - ASTHENIA [None]
  - ERYTHEMA [None]
  - EYE SWELLING [None]
  - FLUSHING [None]
  - NAUSEA [None]
  - PRURITUS [None]
  - SWELLING FACE [None]
